FAERS Safety Report 20969220 (Version 1)
Quarter: 2022Q2

REPORT INFORMATION
  Report Type: Spontaneous
  Country: US (occurrence: US)
  Receive Date: 20220616
  Receipt Date: 20220616
  Transmission Date: 20220721
  Serious: No
  Sender: FDA-Public Use
  Company Number: US-SK LIFE SCIENCE, INC-SKPVG-2022-000115

PATIENT

DRUGS (3)
  1. XCOPRI [Suspect]
     Active Substance: CENOBAMATE
     Indication: Seizure
     Dosage: UNK
     Route: 048
     Dates: start: 20220117
  2. XCOPRI [Suspect]
     Active Substance: CENOBAMATE
     Dosage: 50 MILLIGRAM, QHS
     Route: 048
     Dates: start: 20220125
  3. XCOPRI [Suspect]
     Active Substance: CENOBAMATE
     Dosage: 25 MILLIGRAM, QH
     Route: 048
     Dates: start: 20220302

REACTIONS (7)
  - Condition aggravated [Recovering/Resolving]
  - Musculoskeletal stiffness [Recovering/Resolving]
  - Wrong technique in product usage process [Not Recovered/Not Resolved]
  - Fall [Recovered/Resolved]
  - Gait disturbance [Recovering/Resolving]
  - Confusional state [Recovering/Resolving]
  - Balance disorder [Recovering/Resolving]

NARRATIVE: CASE EVENT DATE: 20220227
